FAERS Safety Report 24551500 (Version 12)
Quarter: 2025Q4

REPORT INFORMATION
  Report Type: Spontaneous
  Country: CA (occurrence: CA)
  Receive Date: 20241026
  Receipt Date: 20251018
  Transmission Date: 20260117
  Serious: Yes (Other)
  Sender: CELLTRION
  Company Number: CA-PFIZER INC-202400243229

PATIENT

DRUGS (55)
  1. INFLIXIMAB [Suspect]
     Active Substance: INFLIXIMAB
     Indication: Crohn^s disease
     Dosage: 5 MG/KG
     Route: 042
  2. INFLIXIMAB [Suspect]
     Active Substance: INFLIXIMAB
     Dosage: 980 MILLIGRAM
     Route: 042
  3. INFLIXIMAB [Suspect]
     Active Substance: INFLIXIMAB
     Dosage: 5 MG/KG
     Route: 042
  4. INFLIXIMAB [Suspect]
     Active Substance: INFLIXIMAB
     Dosage: 10 MG/KG
     Route: 042
  5. INFLIXIMAB [Suspect]
     Active Substance: INFLIXIMAB
     Dosage: 10 MG/KG
     Route: 042
  6. INFLIXIMAB [Suspect]
     Active Substance: INFLIXIMAB
     Dosage: 10 MG/KG
     Route: 042
  7. INFLIXIMAB [Suspect]
     Active Substance: INFLIXIMAB
     Dosage: 10 MG/KG
     Route: 042
  8. INFLIXIMAB [Suspect]
     Active Substance: INFLIXIMAB
     Dosage: 10 MG/KG
     Route: 042
  9. INFLIXIMAB [Suspect]
     Active Substance: INFLIXIMAB
     Dosage: 940 MILLIGRAM
     Route: 042
  10. INFLIXIMAB [Suspect]
     Active Substance: INFLIXIMAB
     Dosage: 940 MILLIGRAM
     Route: 042
  11. INFLIXIMAB [Suspect]
     Active Substance: INFLIXIMAB
     Dosage: 920 MILLIGRAM
     Route: 042
  12. INFLIXIMAB [Suspect]
     Active Substance: INFLIXIMAB
     Dosage: 920 MILLIGRAM
     Route: 042
  13. INFLIXIMAB [Suspect]
     Active Substance: INFLIXIMAB
     Dosage: 920 MILLIGRAM
     Route: 042
  14. INFLIXIMAB [Suspect]
     Active Substance: INFLIXIMAB
     Dosage: 920 MILLIGRAM
     Route: 042
  15. INFLIXIMAB [Suspect]
     Active Substance: INFLIXIMAB
     Dosage: 915 MILLIGRAM
     Route: 042
  16. INFLIXIMAB [Suspect]
     Active Substance: INFLIXIMAB
     Dosage: 915 MILLIGRAM
     Route: 042
  17. INFLIXIMAB [Suspect]
     Active Substance: INFLIXIMAB
     Dosage: 930 MILLIGRAM
     Route: 042
  18. INFLIXIMAB [Suspect]
     Active Substance: INFLIXIMAB
     Dosage: 945 MILLIGRAM
     Route: 042
  19. INFLIXIMAB [Suspect]
     Active Substance: INFLIXIMAB
     Dosage: 945 MILLIGRAM
     Route: 042
  20. INFLIXIMAB [Suspect]
     Active Substance: INFLIXIMAB
     Dosage: 950 MILLIGRAM
     Route: 042
  21. INFLIXIMAB [Suspect]
     Active Substance: INFLIXIMAB
     Dosage: 950 MILLIGRAM
     Route: 042
  22. INFLIXIMAB [Suspect]
     Active Substance: INFLIXIMAB
     Dosage: 950 MILLIGRAM
     Route: 042
  23. INFLIXIMAB [Suspect]
     Active Substance: INFLIXIMAB
     Dosage: 950 MILLIGRAM
     Route: 042
  24. INFLIXIMAB [Suspect]
     Active Substance: INFLIXIMAB
     Dosage: 950 MILLIGRAM
     Route: 042
  25. INFLIXIMAB [Suspect]
     Active Substance: INFLIXIMAB
     Dosage: 980 MILLIGRAM
     Route: 042
  26. INFLIXIMAB [Suspect]
     Active Substance: INFLIXIMAB
     Dosage: 980 MILLIGRAM
     Route: 042
  27. INFLIXIMAB [Suspect]
     Active Substance: INFLIXIMAB
     Dosage: 5 MG/KG
     Route: 042
  28. INFLECTRA [Suspect]
     Active Substance: INFLIXIMAB-DYYB
     Indication: Crohn^s disease
     Dosage: 5 MG/KG, 0, 2, 6 THEN EVERY 8 WEEKS
     Route: 042
     Dates: start: 20210706, end: 20211208
  29. INFLECTRA [Suspect]
     Active Substance: INFLIXIMAB-DYYB
     Dosage: 5 MG/KG, EVERY 6 WEEKS
     Route: 042
     Dates: start: 20220119, end: 20221220
  30. INFLECTRA [Suspect]
     Active Substance: INFLIXIMAB-DYYB
     Dosage: 5 MG/KG, EVERY 4 WEEKS
     Route: 042
     Dates: start: 20230118, end: 20230314
  31. INFLECTRA [Suspect]
     Active Substance: INFLIXIMAB-DYYB
     Dosage: 10 MG/KG, EVERY 4 WEEKS
     Route: 042
     Dates: start: 20230412
  32. INFLECTRA [Suspect]
     Active Substance: INFLIXIMAB-DYYB
     Dosage: 10 MG/KG, EVERY 4 WEEKS
     Route: 042
     Dates: start: 20240725
  33. INFLECTRA [Suspect]
     Active Substance: INFLIXIMAB-DYYB
     Dosage: 10 MG/KG, EVERY 4 WEEKS
     Route: 042
     Dates: start: 20240725
  34. INFLECTRA [Suspect]
     Active Substance: INFLIXIMAB-DYYB
     Dosage: 10 MG/KG, EVERY 4 WEEKS
     Route: 042
     Dates: start: 20240725
  35. INFLECTRA [Suspect]
     Active Substance: INFLIXIMAB-DYYB
     Dosage: 10 MG/KG, EVERY 4 WEEKS
     Route: 042
     Dates: start: 20240725
  36. INFLECTRA [Suspect]
     Active Substance: INFLIXIMAB-DYYB
     Dosage: 940 MG, EVERY 4 WEEKS
     Route: 042
     Dates: start: 20240822, end: 20240822
  37. INFLECTRA [Suspect]
     Active Substance: INFLIXIMAB-DYYB
     Dosage: 940 MG, AFTER 3 WEEKS AND 4 DAYS
     Route: 042
     Dates: start: 20240916, end: 20240916
  38. INFLECTRA [Suspect]
     Active Substance: INFLIXIMAB-DYYB
     Dosage: 920 MG, EVERY 4 WEEKS
     Route: 042
     Dates: start: 20241017, end: 20241017
  39. INFLECTRA [Suspect]
     Active Substance: INFLIXIMAB-DYYB
     Dosage: 920 MG, EVERY 4 WEEKS
     Route: 042
     Dates: start: 20241017, end: 20241017
  40. INFLECTRA [Suspect]
     Active Substance: INFLIXIMAB-DYYB
     Dosage: 920 MG, EVERY 4 WEEKS
     Route: 042
     Dates: start: 20241017, end: 20241017
  41. INFLECTRA [Suspect]
     Active Substance: INFLIXIMAB-DYYB
     Dosage: 920 MG, EVERY 4 WEEKS
     Route: 042
     Dates: start: 20241017, end: 20241017
  42. INFLECTRA [Suspect]
     Active Substance: INFLIXIMAB-DYYB
     Dosage: 915 MG, EVERY 4 WEEKS
     Route: 042
     Dates: start: 20241114
  43. INFLECTRA [Suspect]
     Active Substance: INFLIXIMAB-DYYB
     Dosage: 915 MG, EVERY 4 WEEKS
     Route: 042
     Dates: start: 20241114
  44. INFLECTRA [Suspect]
     Active Substance: INFLIXIMAB-DYYB
     Dosage: 930 MG (10 MG/KG), AFTER 3 WEEKS AND 5 DAYS
     Route: 042
     Dates: start: 20241210
  45. INFLECTRA [Suspect]
     Active Substance: INFLIXIMAB-DYYB
     Dosage: 945 MG, AFTER 4 WEEKS AND 1 DAY
     Route: 042
     Dates: start: 20250108, end: 20250108
  46. INFLECTRA [Suspect]
     Active Substance: INFLIXIMAB-DYYB
     Dosage: 945 MG, AFTER 4 WEEKS (10MG/KG EVERY 4 WEEKS)
     Route: 042
     Dates: start: 20250206
  47. INFLECTRA [Suspect]
     Active Substance: INFLIXIMAB-DYYB
     Dosage: 950 MG, AFTER 3 WEEKS AND 6 DAYS (10MG/KG EVERY 4 WEEKS)
     Route: 042
     Dates: start: 20250305
  48. INFLECTRA [Suspect]
     Active Substance: INFLIXIMAB-DYYB
     Dosage: 950 MG, AFTER 3 WEEKS AND 6 DAYS (10MG/KG EVERY 4 WEEKS)
     Route: 042
     Dates: start: 20250305
  49. INFLECTRA [Suspect]
     Active Substance: INFLIXIMAB-DYYB
     Dosage: 950 MG, AFTER 3 WEEKS AND 6 DAYS (10MG/KG EVERY 4 WEEKS)
     Route: 042
     Dates: start: 20250305
  50. INFLECTRA [Suspect]
     Active Substance: INFLIXIMAB-DYYB
     Dosage: 950 MG, AFTER 3 WEEKS AND 6 DAYS (10MG/KG EVERY 4 WEEKS)
     Route: 042
     Dates: start: 20250305
  51. INFLECTRA [Suspect]
     Active Substance: INFLIXIMAB-DYYB
     Dosage: 950 MG, AFTER 3 WEEKS AND 6 DAYS (10MG/KG EVERY 4 WEEKS)
     Route: 042
     Dates: start: 20250305
  52. INFLECTRA [Suspect]
     Active Substance: INFLIXIMAB-DYYB
     Dosage: 980 MG, 6 WEEKS (10MG/KG, EVERY 4 WEEK)
     Route: 042
     Dates: start: 20250416
  53. INFLECTRA [Suspect]
     Active Substance: INFLIXIMAB-DYYB
     Dosage: 980 MG, 6 WEEKS (10MG/KG, EVERY 4 WEEK)
     Route: 042
     Dates: start: 20250416
  54. INFLECTRA [Suspect]
     Active Substance: INFLIXIMAB-DYYB
     Dosage: 980 MG, EVERY 6 WEEKS (10MG/KG, EVERY 4 WEEK)
     Route: 042
     Dates: start: 20250416
  55. INFLECTRA [Suspect]
     Active Substance: INFLIXIMAB-DYYB
     Dosage: 970 MG, EVERY 6 WEEKS ((10MG/KG)
     Route: 042
     Dates: start: 20250528

REACTIONS (16)
  - Condition aggravated [Not Recovered/Not Resolved]
  - Pyoderma gangrenosum [Not Recovered/Not Resolved]
  - Blood pressure increased [Not Recovered/Not Resolved]
  - Erythema nodosum [Not Recovered/Not Resolved]
  - Aphthous ulcer [Not Recovered/Not Resolved]
  - Drug level above therapeutic [Not Recovered/Not Resolved]
  - Back pain [Not Recovered/Not Resolved]
  - Headache [Not Recovered/Not Resolved]
  - Pharyngitis streptococcal [Not Recovered/Not Resolved]
  - Hypertension [Not Recovered/Not Resolved]
  - Arthralgia [Not Recovered/Not Resolved]
  - Off label use [Not Recovered/Not Resolved]
  - Off label use [Not Recovered/Not Resolved]
  - Intentional product use issue [Not Recovered/Not Resolved]
  - Overdose [Unknown]
  - Intentional product use issue [Unknown]

NARRATIVE: CASE EVENT DATE: 20240101
